FAERS Safety Report 20351821 (Version 1)
Quarter: 2022Q1

REPORT INFORMATION
  Report Type: Report from Study
  Country: GB (occurrence: GB)
  Receive Date: 20220119
  Receipt Date: 20220119
  Transmission Date: 20220423
  Serious: Yes (Hospitalization, Other)
  Sender: FDA-Public Use
  Company Number: GB-NOVARTISPH-NVSC2021GB066323

PATIENT
  Sex: Female
  Weight: 139 kg

DRUGS (2)
  1. COSENTYX [Suspect]
     Active Substance: SECUKINUMAB
     Indication: Psoriasis
     Dosage: 300 MG, Q4W
     Route: 065
     Dates: start: 20190919
  2. FLUCLOXACILLIN [Concomitant]
     Active Substance: FLUCLOXACILLIN
     Indication: Product used for unknown indication
     Dosage: UNK
     Route: 065
     Dates: start: 20200907, end: 20200912

REACTIONS (7)
  - Gestational hypertension [Unknown]
  - Foetal growth restriction [Unknown]
  - Induced labour [Unknown]
  - Maternal exposure during pregnancy [Unknown]
  - Labour complication [Unknown]
  - Complication of delivery [Unknown]
  - Normal newborn [Unknown]

NARRATIVE: CASE EVENT DATE: 20210201
